FAERS Safety Report 7440296-5 (Version None)
Quarter: 2011Q2

REPORT INFORMATION
  Report Type: 
  Country: None (occurrence: None)
  Receive Date: 20110427
  Receipt Date: 20110419
  Transmission Date: 20111010
  Serious: Yes (Other)
  Sender: FDA-Public Use
  Company Number: PHHY2011DK32634

PATIENT
  Sex: Male

DRUGS (3)
  1. DIAZEPAM ^DAK^ [Suspect]
     Indication: NEURALGIA
     Dosage: UNK UKN, UNK
     Route: 048
     Dates: start: 20090101, end: 20100101
  2. CYMBALTA [Suspect]
     Indication: NEURALGIA
     Dosage: UNK UKN, UNK
     Route: 048
     Dates: start: 20090101, end: 20100101
  3. GABAPENTIN [Suspect]
     Indication: NEURALGIA
     Dosage: UNK UKN, UNK
     Route: 048
     Dates: start: 20090101, end: 20100101

REACTIONS (4)
  - DISTURBANCE IN ATTENTION [None]
  - ERECTILE DYSFUNCTION [None]
  - FINE MOTOR DELAY [None]
  - TOOTH DISORDER [None]
